FAERS Safety Report 16022730 (Version 2)
Quarter: 2019Q1

REPORT INFORMATION
  Report Type: Other
  Country: IE (occurrence: IE)
  Receive Date: 20190301
  Receipt Date: 20190314
  Transmission Date: 20190418
  Serious: Yes (Hospitalization, Other)
  Sender: FDA-Public Use
  Company Number: IE-ASPEN-GLO2019IE001668

PATIENT
  Age: 71 Year
  Sex: Male
  Weight: 88 kg

DRUGS (14)
  1. ESOMEPRAZOLE. [Concomitant]
     Active Substance: ESOMEPRAZOLE MAGNESIUM
     Indication: PROPHYLAXIS
     Dosage: 40 MG, QD
     Route: 048
     Dates: start: 20160329
  2. TRAMADOL. [Concomitant]
     Active Substance: TRAMADOL
     Indication: BACK PAIN
     Dosage: 50 MILLIGRAM
     Route: 048
  3. AMOXI-CLAVULANICO [Concomitant]
     Active Substance: AMOXICILLIN\CLAVULANIC ACID
     Indication: RESPIRATORY TRACT INFECTION
     Dosage: 3 G, QD
     Route: 048
     Dates: start: 20161206
  4. DEXAMETHASONE. [Suspect]
     Active Substance: DEXAMETHASONE
     Indication: PLASMA CELL MYELOMA
     Dosage: 40 MILLIGRAM
     Route: 048
     Dates: start: 20160329
  5. COTRIMOXAZOLE [Concomitant]
     Active Substance: SULFAMETHOXAZOLE\TRIMETHOPRIM
     Indication: PROPHYLAXIS
     Dosage: 2880 MILLIGRAM
     Route: 048
     Dates: start: 20160329
  6. TRAMADOL. [Concomitant]
     Active Substance: TRAMADOL
     Indication: PAIN IN EXTREMITY
     Dosage: 50 MILLIGRAM
     Route: 048
     Dates: start: 20160825
  7. FUROSEMIDE. [Concomitant]
     Active Substance: FUROSEMIDE
     Indication: RESPIRATORY TRACT INFECTION
     Dosage: 20 MILLIGRAM
     Route: 048
     Dates: start: 20161206
  8. VALTREX [Concomitant]
     Active Substance: VALACYCLOVIR HYDROCHLORIDE
     Indication: PROPHYLAXIS
     Dosage: 500 MILLIGRAM
     Route: 048
     Dates: start: 20160329
  9. AMOXI-CLAVULANICO [Concomitant]
     Active Substance: AMOXICILLIN\CLAVULANIC ACID
     Indication: EAR INFECTION
     Dosage: 1875 MG DAILY
     Route: 065
     Dates: start: 20170303
  10. CALVAPEN [Concomitant]
     Indication: PROPHYLAXIS
     Route: 048
  11. CLARITHROMYCIN. [Concomitant]
     Active Substance: CLARITHROMYCIN
     Indication: RESPIRATORY TRACT INFECTION
     Route: 048
     Dates: start: 20161206
  12. REVLIMID [Suspect]
     Active Substance: LENALIDOMIDE
     Indication: PLASMA CELL MYELOMA
     Dosage: 25 MILLIGRAM
     Route: 048
     Dates: start: 20160329
  13. REVLIMID [Suspect]
     Active Substance: LENALIDOMIDE
     Dosage: 525 MG, 1 DOSE MONTHLY
     Route: 048
     Dates: start: 20160329
  14. ZOMETA [Concomitant]
     Active Substance: ZOLEDRONIC ACID
     Indication: BONE DISORDER
     Dosage: .1429 MILLIGRAM
     Route: 041
     Dates: start: 20160816

REACTIONS (6)
  - Otitis externa [Recovered/Resolved]
  - Pleuritic pain [Recovered/Resolved]
  - Back pain [Recovered/Resolved]
  - Eye pain [Recovered/Resolved]
  - Lower respiratory tract infection [Recovered/Resolved]
  - Influenza like illness [Recovered/Resolved]

NARRATIVE: CASE EVENT DATE: 20161202
